FAERS Safety Report 9639755 (Version 1)
Quarter: 2013Q4

REPORT INFORMATION
  Report Type: Spontaneous
  Country: US (occurrence: None)
  Receive Date: 20131021
  Receipt Date: 20131021
  Transmission Date: 20140711
  Serious: No
  Sender: FDA-Public Use
  Company Number: None

PATIENT
  Age: 65 Year
  Sex: Female
  Weight: 62.14 kg

DRUGS (1)
  1. ASTEPRO [Suspect]
     Indication: SINUSITIS
     Dosage: 1 SPRAY, ONCE DAILY, INHALATION
     Route: 055

REACTIONS (2)
  - Drug ineffective [None]
  - Nasal congestion [None]
